FAERS Safety Report 6032701-6 (Version None)
Quarter: 2009Q1

REPORT INFORMATION
  Report Type: 
  Country: None (occurrence: None)
  Receive Date: 20090107
  Receipt Date: 20090107
  Transmission Date: 20090719
  Serious: Yes (Hospitalization)
  Sender: FDA-Public Use
  Company Number: None

PATIENT
  Age: 58 Year
  Sex: Female
  Weight: 73.0291 kg

DRUGS (9)
  1. SORAFENIB 200MG [Suspect]
     Indication: PULMONARY ARTERIAL HYPERTENSION
     Dosage: ONCE DAILY
     Dates: start: 20071007
  2. COUMADIN [Concomitant]
  3. EPOGEN [Concomitant]
  4. FLOLAN [Concomitant]
  5. IMODIUM [Concomitant]
  6. LANOXIN [Concomitant]
  7. LASIX [Concomitant]
  8. REVATIO [Concomitant]
  9. TYLENOL (CAPLET) [Concomitant]

REACTIONS (2)
  - ANAEMIA [None]
  - OESOPHAGEAL HAEMORRHAGE [None]
